FAERS Safety Report 24177403 (Version 1)
Quarter: 2024Q3

REPORT INFORMATION
  Report Type: Spontaneous
  Country: GB (occurrence: GB)
  Receive Date: 20240806
  Receipt Date: 20240806
  Transmission Date: 20241017
  Serious: Yes (Other)
  Sender: AUROBINDO
  Company Number: GB-MHRA-TPP51263210C8263963YC1721839010950

PATIENT
  Age: 10 Year
  Sex: Male
  Weight: 50 kg

DRUGS (7)
  1. MONTELUKAST SODIUM [Suspect]
     Active Substance: MONTELUKAST SODIUM
     Indication: Ill-defined disorder
     Dosage: UNK
     Route: 065
     Dates: start: 20240724
  2. CETIRIZINE [Concomitant]
     Active Substance: CETIRIZINE HYDROCHLORIDE
     Indication: Ill-defined disorder
     Dosage: 5 MILLILITER, TWO TIMES A DAY (TAKE 5MG 5MLS2.5ML  TWICE DAILY)
     Route: 065
     Dates: start: 20210623
  3. FEXOFENADINE [Concomitant]
     Active Substance: FEXOFENADINE HYDROCHLORIDE
     Indication: Ill-defined disorder
     Dosage: UNK UNK, TWO TIMES A DAY (TAKE ONE TWICE DAILY)
     Route: 065
     Dates: start: 20240709
  4. FLUTICASONE PROPIONATE [Concomitant]
     Active Substance: FLUTICASONE PROPIONATE
     Indication: Ill-defined disorder
     Dosage: UNK (2 SPRAYS EACH NOSTIL)
     Route: 065
     Dates: start: 20240709
  5. FLUTICASONE FUROATE [Concomitant]
     Active Substance: FLUTICASONE FUROATE
     Indication: Ill-defined disorder
     Dosage: UNK UNK, ONCE A DAY
     Route: 065
     Dates: start: 20231009
  6. ALBUTEROL [Concomitant]
     Active Substance: ALBUTEROL
     Indication: Ill-defined disorder
     Dosage: UNK UNK, FOUR TIMES/DAY (ONE OR TWO PUFFS TO BE INHALED FOUR TIMES A DAY...)
     Route: 065
     Dates: start: 20210623
  7. SERETIDE [Concomitant]
     Active Substance: FLUTICASONE PROPIONATE\SALMETEROL XINAFOATE
     Indication: Ill-defined disorder
     Dosage: UNK UNK, TWO TIMES A DAY (INHALE 1 PUFF TO BE TAKEN TWICE DAILY)
     Route: 065
     Dates: start: 20220704

REACTIONS (1)
  - Intentional self-injury [Recovered/Resolved]

NARRATIVE: CASE EVENT DATE: 20240724
